FAERS Safety Report 6628757-X (Version None)
Quarter: 2010Q1

REPORT INFORMATION
  Report Type: 
  Country: None (occurrence: None)
  Receive Date: 20100311
  Receipt Date: 20100308
  Transmission Date: 20100710
  Serious: Yes (Death, Other)
  Sender: FDA-Public Use
  Company Number: JP-BAYER-200914361BYL

PATIENT
  Age: 82 Year
  Sex: Male
  Weight: 51 kg

DRUGS (11)
  1. NEXAVAR [Suspect]
     Indication: HEPATIC NEOPLASM MALIGNANT
     Dosage: TOTAL DAILY DOSE: 400 MG  UNIT DOSE: 200 MG
     Route: 048
     Dates: start: 20091102, end: 20091107
  2. NEXAVAR [Suspect]
     Dosage: UNIT DOSE: 200 MG
     Route: 048
     Dates: start: 20091109
  3. LENDORMIN D [Concomitant]
     Indication: INSOMNIA
     Dosage: SINCE BEFORE ADMINISTRATION
     Route: 048
     Dates: end: 20091214
  4. AMOBAN [Concomitant]
     Indication: INSOMNIA
     Dosage: SINCE BEFORE ADMINISTRATION
     Route: 048
     Dates: end: 20091214
  5. METHYCOBAL [Concomitant]
     Indication: SLEEP DISORDER
     Dosage: SINCE BEFORE ADMINISTRATION
     Route: 048
     Dates: end: 20091214
  6. GLAKAY [Concomitant]
     Dosage: SINCE BEFORE ADMINISTRATION
     Route: 048
     Dates: end: 20091214
  7. BIO-THREE [Concomitant]
     Indication: DISBACTERIOSIS
     Dosage: SINCE BEFORE ADMINISTRATION
     Route: 048
     Dates: end: 20091214
  8. HARNAL D [Concomitant]
     Indication: DYSURIA
     Dosage: SINCE BEFORE ADMINISTRATION
     Route: 048
     Dates: end: 20091214
  9. RACOL [Concomitant]
     Dosage: SINCE BEFORE ADMINISTRATION
     Route: 048
     Dates: end: 20091214
  10. KERATINAMIN [Concomitant]
     Indication: PROPHYLAXIS
     Route: 061
     Dates: start: 20091102, end: 20091204
  11. HIRUDOID [Concomitant]
     Indication: PROPHYLAXIS
     Route: 061
     Dates: start: 20091102, end: 20091214

REACTIONS (2)
  - HAEMOPTYSIS [None]
  - PNEUMONIA ASPIRATION [None]
